FAERS Safety Report 15200547 (Version 2)
Quarter: 2025Q1

REPORT INFORMATION
  Report Type: Spontaneous
  Country: US (occurrence: US)
  Receive Date: 20180726
  Receipt Date: 20250213
  Transmission Date: 20250409
  Serious: No
  Sender: TAKEDA
  Company Number: US-SHIRE-US201827690

PATIENT
  Age: 72 Year
  Sex: Female

DRUGS (4)
  1. GATTEX [Suspect]
     Active Substance: TEDUGLUTIDE\WATER
     Indication: Short-bowel syndrome
  2. GATTEX [Suspect]
     Active Substance: TEDUGLUTIDE\WATER
  3. GATTEX [Suspect]
     Active Substance: TEDUGLUTIDE\WATER
  4. GATTEX [Suspect]
     Active Substance: TEDUGLUTIDE\WATER

REACTIONS (2)
  - Weight fluctuation [Unknown]
  - Chest pain [Not Recovered/Not Resolved]

NARRATIVE: CASE EVENT DATE: 20250211
